FAERS Safety Report 25484835 (Version 1)
Quarter: 2025Q2

REPORT INFORMATION
  Report Type: Spontaneous
  Country: SG (occurrence: SG)
  Receive Date: 20250626
  Receipt Date: 20250626
  Transmission Date: 20250717
  Serious: Yes (Other)
  Sender: MERCK SHARP & DOHME LLC
  Company Number: SG-009507513-2298050

PATIENT
  Age: 30 Year
  Sex: Male

DRUGS (4)
  1. PEMBROLIZUMAB [Suspect]
     Active Substance: PEMBROLIZUMAB
     Indication: Gastric cancer
  2. TRASTUZUMAB [Suspect]
     Active Substance: TRASTUZUMAB
     Indication: Gastric cancer
  3. CAPECITABINE [Suspect]
     Active Substance: CAPECITABINE
     Indication: Gastric cancer
  4. OXALIPLATIN [Suspect]
     Active Substance: OXALIPLATIN
     Indication: Gastric cancer

REACTIONS (35)
  - Carcinoembryonic antigen increased [Unknown]
  - Thyroxine increased [Unknown]
  - Hypothyroidism [Unknown]
  - Blood potassium increased [Unknown]
  - Blood sodium decreased [Unknown]
  - Blood thyroid stimulating hormone increased [Recovered/Resolved]
  - Blood thyroid stimulating hormone decreased [Unknown]
  - Transaminases increased [Unknown]
  - Blood bilirubin increased [Unknown]
  - Protein total abnormal [Unknown]
  - Blood alkaline phosphatase increased [Unknown]
  - Blood thyroid stimulating hormone decreased [Unknown]
  - Therapy partial responder [Unknown]
  - Thyroxine increased [Unknown]
  - Blood thyroid stimulating hormone decreased [Recovered/Resolved]
  - Thyroxine decreased [Recovered/Resolved]
  - Blood chloride decreased [Unknown]
  - Blood potassium decreased [Unknown]
  - Thyroxine increased [Recovered/Resolved]
  - Blood sodium decreased [Unknown]
  - Blood chloride decreased [Unknown]
  - Blood creatinine increased [Unknown]
  - Blood alkaline phosphatase increased [Unknown]
  - Transaminases increased [Unknown]
  - Protein total decreased [Unknown]
  - Blood albumin decreased [Unknown]
  - Blood alkaline phosphatase increased [Unknown]
  - Transaminases increased [Unknown]
  - Blood albumin decreased [Unknown]
  - Blood alkaline phosphatase increased [Unknown]
  - Blood bilirubin increased [Unknown]
  - Transaminases increased [Unknown]
  - Transferrin saturation decreased [Unknown]
  - Blood iron decreased [Unknown]
  - Carcinoembryonic antigen increased [Unknown]

NARRATIVE: CASE EVENT DATE: 20220620
